FAERS Safety Report 7569083-4 (Version None)
Quarter: 2011Q2

REPORT INFORMATION
  Report Type: 
  Country: None (occurrence: None)
  Receive Date: 20110623
  Receipt Date: 20110616
  Transmission Date: 20111010
  Serious: Yes (Other)
  Sender: FDA-Public Use
  Company Number: US-US-EMD SERONO, INC.-7039021

PATIENT
  Sex: Female

DRUGS (1)
  1. REBIF [Suspect]
     Indication: MULTIPLE SCLEROSIS
     Route: 058
     Dates: start: 20071221

REACTIONS (5)
  - SELF INJURIOUS BEHAVIOUR [None]
  - BIPOLAR DISORDER [None]
  - CENTRAL NERVOUS SYSTEM LESION [None]
  - POST PROCEDURAL INFECTION [None]
  - ANGER [None]
